FAERS Safety Report 8384642-7 (Version None)
Quarter: 2012Q2

REPORT INFORMATION
  Report Type: 
  Country: None (occurrence: None)
  Receive Date: 20120524
  Receipt Date: 20120515
  Transmission Date: 20120825
  Serious: Yes (Hospitalization, Other)
  Sender: FDA-Public Use
  Company Number: US-CELGENEUS-163-21880-12031539

PATIENT
  Sex: Male

DRUGS (11)
  1. REVLIMID [Suspect]
     Dosage: 10 MILLIGRAM
     Route: 048
     Dates: start: 20120224
  2. HYDROCODONE BITARTRATE + ACETAMINOPHEN [Concomitant]
     Route: 065
  3. REVLIMID [Suspect]
     Dosage: 10 MILLIGRAM
     Route: 048
     Dates: start: 20120203, end: 20120218
  4. VELCADE [Suspect]
     Route: 065
  5. ALPRAZOLAM [Concomitant]
     Route: 065
  6. ONDANSETRON HCL [Concomitant]
     Route: 065
  7. DECADRON [Suspect]
     Route: 065
  8. VITAMIN B COMPLEX CAP [Concomitant]
     Route: 065
  9. HYDROCHLOROTHIAZIDE [Concomitant]
     Route: 065
  10. LEVOTHROID [Concomitant]
     Route: 065
  11. PROCHLORPERAZINE MALEATE [Concomitant]
     Route: 065

REACTIONS (4)
  - HYPOTENSION [None]
  - SEPSIS [None]
  - IMMUNOSUPPRESSION [None]
  - SYNCOPE [None]
